FAERS Safety Report 14312020 (Version 5)
Quarter: 2018Q2

REPORT INFORMATION
  Report Type: Spontaneous
  Country: DE (occurrence: DE)
  Receive Date: 20171221
  Receipt Date: 20180523
  Transmission Date: 20180711
  Serious: Yes (Hospitalization, Other)
  Sender: FDA-Public Use
  Company Number: DE-IPSEN BIOPHARMACEUTICALS, INC.-2017-16061

PATIENT
  Age: 60 Year
  Sex: Male
  Weight: 95 kg

DRUGS (27)
  1. AVASTIN [Suspect]
     Active Substance: BEVACIZUMAB
     Indication: COLORECTAL CANCER METASTATIC
     Route: 042
     Dates: start: 20160704, end: 20160704
  2. 5-FLUOROURACIL [Suspect]
     Active Substance: FLUOROURACIL
     Dosage: 4800-6400 MG
     Route: 041
     Dates: start: 20160704, end: 20161205
  3. PALONOSETRON. [Suspect]
     Active Substance: PALONOSETRON HYDROCHLORIDE
     Indication: PROPHYLAXIS OF NAUSEA AND VOMITING
  4. RIVAROXABAN [Suspect]
     Active Substance: RIVAROXABAN
     Indication: COLORECTAL CANCER METASTATIC
  5. FOLINIC ACID [Suspect]
     Active Substance: LEUCOVORIN
     Dates: start: 20171016, end: 20171016
  6. METOCLOPRAMIDE. [Concomitant]
     Active Substance: METOCLOPRAMIDE
  7. 5-FLUOROURACIL [Suspect]
     Active Substance: FLUOROURACIL
     Dates: start: 20171001, end: 20171004
  8. FOLINIC ACID [Suspect]
     Active Substance: LEUCOVORIN
     Indication: COLORECTAL CANCER METASTATIC
     Route: 042
     Dates: start: 20160704, end: 20170410
  9. PEGYLATED LIPOSOMAL IRINOTECAN [Suspect]
     Active Substance: IRINOTECAN HYDROCHLORIDE
     Indication: COLORECTAL CANCER METASTATIC
     Dosage: 360 MG
     Route: 042
     Dates: start: 20160704, end: 20161205
  10. DEXAMETASON [Concomitant]
     Active Substance: DEXAMETHASONE
  11. NOVALGIN (METAMIZOLE SODIUM) [Concomitant]
     Active Substance: METAMIZOLE SODIUM
  12. AVASTIN [Suspect]
     Active Substance: BEVACIZUMAB
     Route: 042
     Dates: start: 20171016, end: 20171016
  13. FOLINIC ACID [Suspect]
     Active Substance: LEUCOVORIN
     Dates: start: 20171001
  14. ONDASETRON [Suspect]
     Active Substance: ONDANSETRON
     Indication: PROPHYLAXIS OF NAUSEA AND VOMITING
     Route: 042
     Dates: start: 20170116
  15. RAMIPRIL. [Concomitant]
     Active Substance: RAMIPRIL
  16. PEGYLATED LIPOSOMAL IRINOTECAN [Suspect]
     Active Substance: IRINOTECAN HYDROCHLORIDE
     Indication: OFF LABEL USE
     Dosage: 360 MG
     Route: 042
     Dates: start: 20171016, end: 20171016
  17. 5-FLUOROURACIL [Suspect]
     Active Substance: FLUOROURACIL
     Route: 042
     Dates: start: 20170410
  18. RIVAROXABAN [Suspect]
     Active Substance: RIVAROXABAN
     Indication: DEEP VEIN THROMBOSIS
     Route: 048
     Dates: start: 20170524
  19. MCP [Concomitant]
     Active Substance: METOCLOPRAMIDE HYDROCHLORIDE
  20. AVASTIN [Suspect]
     Active Substance: BEVACIZUMAB
     Route: 042
     Dates: start: 20171002, end: 20171002
  21. 5-FLUOROURACIL [Suspect]
     Active Substance: FLUOROURACIL
     Indication: COLORECTAL CANCER METASTATIC
     Route: 040
     Dates: start: 20160704, end: 20161205
  22. 5-FLUOROURACIL [Suspect]
     Active Substance: FLUOROURACIL
     Route: 040
     Dates: start: 20171016, end: 20171016
  23. 5-FLUOROURACIL [Suspect]
     Active Substance: FLUOROURACIL
     Route: 042
     Dates: start: 20171002, end: 20171004
  24. ONDASETRON [Suspect]
     Active Substance: ONDANSETRON
     Indication: COLORECTAL CANCER METASTATIC
  25. PALONOSETRON. [Suspect]
     Active Substance: PALONOSETRON HYDROCHLORIDE
     Indication: COLORECTAL CANCER METASTATIC
  26. 5-FLUOROURACIL [Suspect]
     Active Substance: FLUOROURACIL
     Route: 042
     Dates: start: 20171016, end: 20171018
  27. EMEND [Concomitant]
     Active Substance: APREPITANT

REACTIONS (8)
  - Vomiting [Recovered/Resolved]
  - Inappropriate schedule of drug administration [Unknown]
  - Haematochezia [Recovered/Resolved]
  - Constipation [Recovered/Resolved]
  - Off label use [Unknown]
  - Nausea [Not Recovered/Not Resolved]
  - Paraesthesia [Recovered/Resolved]
  - Deep vein thrombosis [Recovered/Resolved with Sequelae]

NARRATIVE: CASE EVENT DATE: 20170422
